FAERS Safety Report 8368461-3 (Version None)
Quarter: 2012Q2

REPORT INFORMATION
  Report Type: 
  Country: None (occurrence: None)
  Receive Date: 20120518
  Receipt Date: 20120511
  Transmission Date: 20120825
  Serious: Yes (Death, Hospitalization)
  Sender: FDA-Public Use
  Company Number: PHHO2012JP006890

PATIENT
  Sex: Male
  Weight: 163 kg

DRUGS (34)
  1. ALISKIREN [Suspect]
     Indication: CARDIAC FAILURE
     Dosage: UNK
     Route: 048
     Dates: start: 20091005
  2. LASIX [Suspect]
     Indication: CARDIAC FAILURE CHRONIC
     Dosage: 80 MG, UNK
     Route: 048
     Dates: start: 20020306
  3. MOTILIUM [Suspect]
     Indication: GASTRITIS
     Dosage: 30 MG, UNK
     Route: 048
     Dates: start: 20090325
  4. LENDORMIN [Suspect]
     Indication: INSOMNIA
     Dosage: 0.25 MG, UNK
     Route: 048
     Dates: start: 20060410, end: 20120502
  5. XALATAN [Suspect]
     Indication: GLAUCOMA
     Dosage: 1 GTT, UNK
     Route: 047
     Dates: start: 20040130
  6. DIART [Suspect]
     Indication: CARDIAC FAILURE CHRONIC
     Dosage: 40 MG, UNK
     Dates: start: 20120416
  7. FELBINAC [Suspect]
     Indication: LUMBAR SPINAL STENOSIS
     Dosage: UNK
     Dates: start: 20110909
  8. LASIX [Suspect]
     Dosage: 60 MG, UNK
     Route: 048
     Dates: start: 20080825
  9. HYALEIN [Suspect]
     Indication: DRY EYE
     Dosage: 2 GTT, UNK
     Dates: start: 20111028
  10. ENALAPRIL MALEATE [Suspect]
     Indication: CARDIAC FAILURE
     Dosage: UNK
     Route: 048
     Dates: start: 20091005
  11. WARFARIN SODIUM [Suspect]
     Indication: PROPHYLAXIS
     Dosage: 3 MG, UNK
     Route: 048
     Dates: start: 20091103
  12. WARFARIN SODIUM [Suspect]
     Dosage: 3 MG, DAILY (ALTERNATE DAY THERAPY)
     Route: 048
     Dates: start: 20091201, end: 20091228
  13. ALDACTONE [Suspect]
     Indication: CARDIAC FAILURE CHRONIC
     Dosage: 25 MG, UNK
     Route: 048
     Dates: start: 20040128
  14. FELTASE [Suspect]
     Indication: GASTRITIS
     Dosage: 1080 MG, UNK
     Route: 048
     Dates: start: 20090325
  15. ALLOPURINOL [Suspect]
     Indication: HYPERURICAEMIA
     Dosage: 200 MG, UNK
     Route: 048
     Dates: start: 20070619
  16. GASCON [Suspect]
     Indication: GASTRITIS
     Dosage: 320 MG, UNK
     Route: 048
     Dates: start: 20090622
  17. GASCON [Suspect]
     Dosage: 240 MG, UNK
     Route: 048
     Dates: start: 20090622
  18. AZOPT [Suspect]
     Dosage: 1 GTT, UNK
     Dates: start: 20040130
  19. WARFARIN SODIUM [Suspect]
     Dosage: 3.25 MG, DAILY (ALTERNATE DAY THERAPY)
     Route: 048
     Dates: start: 20091202, end: 20091228
  20. LASIX [Suspect]
     Dosage: 20 MG, QD
     Route: 048
  21. XALATAN [Suspect]
     Dosage: 2 GTT, UNK
     Dates: start: 20040130, end: 20120502
  22. TRINOSIN [Suspect]
     Indication: CEREBRAL INFARCTION
     Dosage: 3 G, UNK
     Route: 048
     Dates: start: 20071001
  23. GASMOTIN [Concomitant]
     Indication: GASTRITIS
     Dosage: 15 MG, UNK
     Route: 048
     Dates: start: 20071001
  24. PLETAL [Suspect]
     Indication: CEREBRAL INFARCTION
     Dosage: 200 MG, UNK
     Route: 048
     Dates: start: 20071001
  25. SERMION [Suspect]
     Indication: CEREBRAL INFARCTION
     Dosage: 15 MG, UNK
     Route: 048
     Dates: start: 20071001
  26. BUFFERIN [Suspect]
     Indication: PROPHYLAXIS
     Dosage: 81 MG, UNK
     Route: 048
     Dates: start: 20020306
  27. AZOPT [Suspect]
     Indication: GLAUCOMA
     Dosage: 2 GTT, UNK
     Route: 047
     Dates: start: 20040130
  28. WARFARIN SODIUM [Suspect]
     Dosage: 2.25 MG, UNK
     Route: 048
     Dates: start: 20120416
  29. PLETAL [Suspect]
     Dosage: 50 MG, UNK
     Route: 048
     Dates: start: 20071001
  30. LAC B [Suspect]
     Indication: DIARRHOEA
     Dosage: 3 G, UNK
     Route: 048
     Dates: start: 20090914, end: 20091228
  31. URSO 250 [Suspect]
     Indication: HEPATIC FUNCTION ABNORMAL
     Dosage: 300 MG, UNK
     Route: 048
     Dates: start: 20110829
  32. LIMAPROST [Suspect]
     Indication: LUMBAR SPINAL STENOSIS
     Dosage: 15 UG, UNK
     Route: 048
     Dates: start: 20020306
  33. MECOBALAMIN [Suspect]
     Indication: LUMBAR SPINAL STENOSIS
     Dosage: 0.5 MG, UNK
     Route: 048
     Dates: start: 20110909
  34. ADENOSINE [Concomitant]
     Indication: CEREBRAL INFARCTION
     Dosage: 300 MG, UNK
     Route: 048
     Dates: start: 20071001

REACTIONS (1)
  - SUDDEN CARDIAC DEATH [None]
